FAERS Safety Report 19931950 (Version 3)
Quarter: 2022Q4

REPORT INFORMATION
  Report Type: Spontaneous
  Country: SK (occurrence: SK)
  Receive Date: 20211007
  Receipt Date: 20221031
  Transmission Date: 20230112
  Serious: Yes (Death, Hospitalization, Other)
  Sender: FDA-Public Use
  Company Number: SK-EMA-DD-20210924-KUMARVN_P-100801

PATIENT
  Age: 56 Year
  Sex: Male

DRUGS (5)
  1. CYCLOPHOSPHAMIDE [Suspect]
     Active Substance: CYCLOPHOSPHAMIDE
     Indication: Plasma cell myeloma
     Dosage: PRN, UNK
     Route: 065
  2. DEXAMETHASONE [Suspect]
     Active Substance: DEXAMETHASONE
     Indication: Plasma cell myeloma
     Dosage: PRN
     Route: 065
  3. DEXAMETHASONE [Suspect]
     Active Substance: DEXAMETHASONE
     Route: 065
  4. VELCADE [Suspect]
     Active Substance: BORTEZOMIB
     Indication: Plasma cell myeloma
     Dosage: UNK
     Route: 065
  5. MIDODRINE HYDROCHLORIDE [Concomitant]
     Active Substance: MIDODRINE HYDROCHLORIDE
     Indication: Drug therapy
     Route: 065

REACTIONS (13)
  - Haemorrhagic infarction [Fatal]
  - Myelosuppression [Fatal]
  - Azotaemia [Fatal]
  - Infection in an immunocompromised host [Fatal]
  - Erysipelas [Fatal]
  - Fungal oesophagitis [Fatal]
  - SARS-CoV-2 test positive [Fatal]
  - Multiple organ dysfunction syndrome [Fatal]
  - Pneumonia [Fatal]
  - Colitis [Fatal]
  - Gastrointestinal haemorrhage [Fatal]
  - Septic shock [Fatal]
  - Tinea cruris [Unknown]

NARRATIVE: CASE EVENT DATE: 20200919
